FAERS Safety Report 8596371-5 (Version None)
Quarter: 2012Q3

REPORT INFORMATION
  Report Type: 
  Country: None (occurrence: None)
  Receive Date: 20120807
  Receipt Date: 20120807
  Transmission Date: 20120928
  Serious: Yes (Other)
  Sender: FDA-Public Use
  Company Number: None

PATIENT
  Age: 86 Year
  Sex: Female
  Weight: 81.6475 kg

DRUGS (1)
  1. WARFARIN SODIUM [Suspect]
     Indication: TRANSIENT ISCHAEMIC ATTACK
     Dosage: 2 TABLETS 1ST DAY, 1-A DAY THEREAFTER
     Dates: start: 20120323, end: 20120418

REACTIONS (1)
  - DYSURIA [None]
